FAERS Safety Report 14845043 (Version 1)
Quarter: 2018Q2

REPORT INFORMATION
  Report Type: Spontaneous
  Country: FR (occurrence: FR)
  Receive Date: 20180504
  Receipt Date: 20180504
  Transmission Date: 20180711
  Serious: Yes (Hospitalization)
  Sender: FDA-Public Use
  Company Number: FR-TEVA-2018-FR-889472

PATIENT
  Age: 52 Year
  Sex: Female

DRUGS (6)
  1. SURGAM 200 MG, SCORED TABLET [Suspect]
     Active Substance: TIAPROFENIC ACID
     Indication: PAIN
     Dosage: 3 DOSAGE FORMS DAILY;
     Route: 048
  2. ESOMEPRAZOLE [Suspect]
     Active Substance: ESOMEPRAZOLE
     Indication: PROPHYLAXIS AGAINST GASTROINTESTINAL ULCER
     Dosage: 20 MILLIGRAM DAILY;
     Route: 048
  3. PARACETAMOL [Concomitant]
     Active Substance: ACETAMINOPHEN
     Route: 048
  4. DICLOFENAC [Concomitant]
     Active Substance: DICLOFENAC
     Route: 061
  5. JOSACINE [Suspect]
     Active Substance: JOSAMYCIN
     Indication: INFECTION
     Route: 048
  6. HELICIDINE [Concomitant]
     Active Substance: ESCARGOT
     Route: 048

REACTIONS (3)
  - Balance disorder [Recovered/Resolved]
  - Vomiting [Recovered/Resolved]
  - Diplopia [Recovered/Resolved]
